FAERS Safety Report 16079803 (Version 2)
Quarter: 2019Q1

REPORT INFORMATION
  Report Type: Spontaneous
  Country: JP (occurrence: JP)
  Receive Date: 20190315
  Receipt Date: 20190323
  Transmission Date: 20190418
  Serious: Yes (Hospitalization, Disabling)
  Sender: FDA-Public Use
  Company Number: JP-REGENERON PHARMACEUTICALS, INC.-2019-15968

PATIENT

DRUGS (5)
  1. VANCOMYCIN HYDROCHLORIDE. [Concomitant]
     Active Substance: VANCOMYCIN HYDROCHLORIDE
     Indication: PRODUCT USED FOR UNKNOWN INDICATION
     Dosage: 0.03 ML
     Route: 031
     Dates: start: 20180604
  2. CEFTAZIDIME. [Concomitant]
     Active Substance: CEFTAZIDIME
     Indication: PRODUCT USED FOR UNKNOWN INDICATION
     Dosage: UNK
     Route: 031
     Dates: start: 20180604
  3. MEPIVACAINE HYDROCHLORIDE. [Concomitant]
     Active Substance: MEPIVACAINE HYDROCHLORIDE
     Indication: LOCAL ANAESTHESIA
     Dosage: 4 ML
  4. SHELLGAN [Concomitant]
     Indication: PRODUCT USED FOR UNKNOWN INDICATION
     Dosage: 1000 IU
     Route: 031
     Dates: start: 20180604
  5. EYLEA [Suspect]
     Active Substance: AFLIBERCEPT
     Indication: AGE-RELATED MACULAR DEGENERATION
     Dosage: 0.05 ML, LEFT EYE
     Route: 031
     Dates: start: 20180601, end: 20180601

REACTIONS (3)
  - Endophthalmitis [Recovering/Resolving]
  - Vitreous haemorrhage [Recovered/Resolved]
  - Hyphaema [Recovered/Resolved]

NARRATIVE: CASE EVENT DATE: 20180604
